FAERS Safety Report 5368382-4 (Version None)
Quarter: 2007Q2

REPORT INFORMATION
  Report Type: 
  Country: None (occurrence: None)
  Receive Date: 20070619
  Receipt Date: 20070605
  Transmission Date: 20071010
  Serious: Yes (Hospitalization)
  Sender: FDA-Public Use
  Company Number: 2007AL002277

PATIENT
  Age: 57 Year
  Sex: Male

DRUGS (1)
  1. METFORMIN HYDROCHLORIDE [Suspect]
     Indication: DIABETES MELLITUS NON-INSULIN-DEPENDENT

REACTIONS (18)
  - ABDOMINAL PAIN [None]
  - APACHE II SCORE INCREASED [None]
  - BLOOD CREATININE INCREASED [None]
  - CARDIAC ARREST [None]
  - CONFUSIONAL STATE [None]
  - DIARRHOEA [None]
  - FALL [None]
  - HAEMODIALYSIS [None]
  - HYPOTENSION [None]
  - HYPOTHERMIA [None]
  - LACTIC ACIDOSIS [None]
  - LETHARGY [None]
  - LOSS OF CONSCIOUSNESS [None]
  - MALAISE [None]
  - MECHANICAL VENTILATION [None]
  - RENAL FAILURE ACUTE [None]
  - SOMNOLENCE [None]
  - VOMITING [None]
